FAERS Safety Report 8559186 (Version 2)
Quarter: 2012Q4

REPORT INFORMATION
  Report Type: 
  Country: US (occurrence: None)
  Receive Date: 20120507
  Receipt Date: 20121101
  Transmission Date: 20130627
  Serious: Yes (Death, Hospitalization)
  Sender: FDA-Public Use
  Company Number: NSR_00541_2012

PATIENT
  Age: 40 Year
  Sex: Female

DRUGS (4)
  1. LAMOTRIGINE [Suspect]
     Indication: PRODUCT USED FOR UNKNOWN INDICATION
     Dosage: DF
  2. MIRTAZAPINE [Suspect]
     Indication: PRODUCT USED FOR UNKNOWN INDICATION
     Dosage: DF
  3. QUETIAPINE [Suspect]
     Dosage: (DF)
  4. VENLAFAXINE [Suspect]
     Dosage: (DF)

REACTIONS (11)
  - Agranulocytosis [None]
  - Febrile neutropenia [None]
  - Unresponsive to stimuli [None]
  - Hypotension [None]
  - Enterococcus test positive [None]
  - Aspergillus test positive [None]
  - Candida test positive [None]
  - General physical health deterioration [None]
  - Septic shock [None]
  - Drug interaction [None]
  - Multi-organ disorder [None]
